FAERS Safety Report 6108585-4 (Version None)
Quarter: 2009Q1

REPORT INFORMATION
  Report Type: 
  Country: None (occurrence: None)
  Receive Date: 20090305
  Receipt Date: 20090220
  Transmission Date: 20090719
  Serious: Yes (Other)
  Sender: FDA-Public Use
  Company Number: 2009000485

PATIENT
  Sex: Female

DRUGS (1)
  1. TARCEVA [Suspect]
     Dosage: (150 MG),ORAL
     Route: 048
     Dates: start: 20080901

REACTIONS (5)
  - GAIT DISTURBANCE [None]
  - GROIN PAIN [None]
  - METASTASIS [None]
  - NECK PAIN [None]
  - RADICULAR PAIN [None]
